FAERS Safety Report 17919941 (Version 9)
Quarter: 2021Q3

REPORT INFORMATION
  Report Type: Spontaneous
  Country: DE (occurrence: DE)
  Receive Date: 20200620
  Receipt Date: 20210901
  Transmission Date: 20211014
  Serious: Yes (Other)
  Sender: FDA-Public Use
  Company Number: DE-AUROBINDO-AUR-APL-2020-028981

PATIENT
  Age: 67 Year
  Sex: Female
  Weight: 72 kg

DRUGS (9)
  1. KISQALI [Suspect]
     Active Substance: RIBOCICLIB
     Dosage: 400 MILLIGRAM, ONCE A DAY, ((21 DAYS INTAKE, 7 DAYS PAUSE))
     Route: 048
     Dates: start: 20210119, end: 20210208
  2. LETROZOLE. [Suspect]
     Active Substance: LETROZOLE
     Indication: BREAST CANCER METASTATIC
     Dosage: 2.5 MILLIGRAM, ONCE A DAY
     Route: 048
     Dates: start: 20200518
  3. KISQALI [Suspect]
     Active Substance: RIBOCICLIB
     Dosage: 400 MILLIGRAM, ONCE A DAY (21 DAYS INTAKE, 7 DAYS PAUSE)
     Route: 048
     Dates: start: 20200624, end: 20201012
  4. KISQALI [Suspect]
     Active Substance: RIBOCICLIB
     Dosage: 200 MILLIGRAM, ONCE A DAY
     Route: 048
     Dates: start: 20210614, end: 20210715
  5. KISQALI [Suspect]
     Active Substance: RIBOCICLIB
     Dosage: 400 MILLIGRAM, ONCE A DAY, ((21 DAYS INTAKE, 7 DAYS PAUSE))
     Route: 048
     Dates: start: 20210716
  6. KISQALI [Suspect]
     Active Substance: RIBOCICLIB
     Dosage: 400 MILLIGRAM, ONCE A DAY, ((21 DAYS INTAKE, 7 DAYS PAUSE))
     Route: 048
     Dates: start: 20201208, end: 20201229
  7. KISQALI [Suspect]
     Active Substance: RIBOCICLIB
     Dosage: 400 MILLIGRAM, ONCE A DAY, ((21 DAYS INTAKE, 7 DAYS PAUSE))
     Route: 048
     Dates: start: 20201026, end: 20201104
  8. KISQALI [Suspect]
     Active Substance: RIBOCICLIB
     Dosage: 400 MILLIGRAM, ONCE A DAY, ((21 DAYS INTAKE, 7 DAYS PAUSE))
     Route: 048
     Dates: start: 20210223, end: 20210613
  9. KISQALI [Suspect]
     Active Substance: RIBOCICLIB
     Indication: BREAST CANCER METASTATIC
     Dosage: 600 MILLIGRAM, ONCE A DAY, ((21 DAYS INTAKE, 7 DAYS PAUSE))
     Route: 048
     Dates: start: 20200518, end: 20200603

REACTIONS (6)
  - Visual impairment [Not Recovered/Not Resolved]
  - Neutropenia [Recovered/Resolved]
  - Muscle spasms [Not Recovered/Not Resolved]
  - Aphasia [Not Recovered/Not Resolved]
  - Granulocytopenia [Recovered/Resolved]
  - Thrombocytopenia [Recovered/Resolved]

NARRATIVE: CASE EVENT DATE: 20200602
